FAERS Safety Report 23909023 (Version 3)
Quarter: 2024Q3

REPORT INFORMATION
  Report Type: Spontaneous
  Country: US (occurrence: US)
  Receive Date: 20240528
  Receipt Date: 20240909
  Transmission Date: 20241016
  Serious: No
  Sender: LUPIN
  Company Number: US-LUPIN PHARMACEUTICALS INC.-2024-04264

PATIENT

DRUGS (2)
  1. TIOTROPIUM BROMIDE [Suspect]
     Active Substance: TIOTROPIUM BROMIDE
     Indication: Asthma
     Dosage: 1 DOSAGE FORM, QD (ONE CAPSULE DAILY)
     Dates: start: 20240509
  2. TIOTROPIUM BROMIDE [Suspect]
     Active Substance: TIOTROPIUM BROMIDE
     Indication: Wheezing

REACTIONS (5)
  - Drug dose omission by device [Unknown]
  - Product packaging quantity issue [Unknown]
  - Product packaging issue [Unknown]
  - Device defective [Unknown]
  - No adverse event [Unknown]
